FAERS Safety Report 21318925 (Version 1)
Quarter: 2022Q3

REPORT INFORMATION
  Report Type: Spontaneous
  Country: US (occurrence: US)
  Receive Date: 20220911
  Receipt Date: 20220911
  Transmission Date: 20221026
  Serious: Yes (Other)
  Sender: FDA-Public Use
  Company Number: US-SA-2022SA357760

PATIENT
  Age: 82 Year
  Sex: Male
  Weight: 72.56 kg

DRUGS (8)
  1. PLAVIX [Suspect]
     Active Substance: CLOPIDOGREL BISULFATE
     Dosage: UNK
  2. ENZALUTAMIDE [Suspect]
     Active Substance: ENZALUTAMIDE
     Indication: Prostate cancer
     Dosage: 160 MG, QD
     Route: 048
     Dates: start: 20220715
  3. ENZALUTAMIDE [Suspect]
     Active Substance: ENZALUTAMIDE
     Dosage: 80 MG, QD
     Route: 048
  4. CALCIUM CARBONATE [Concomitant]
     Active Substance: CALCIUM CARBONATE
     Dosage: UNK
  5. TYLENOL [Concomitant]
     Active Substance: ACETAMINOPHEN
     Dosage: UNK
  6. VITAMIN D3 [Concomitant]
     Active Substance: CHOLECALCIFEROL
     Dosage: UNK
  7. XELODA [Concomitant]
     Active Substance: CAPECITABINE
     Dosage: UNK
  8. XGEVA [Concomitant]
     Active Substance: DENOSUMAB
     Dosage: UNK

REACTIONS (15)
  - Haemorrhage [Unknown]
  - Vascular occlusion [Unknown]
  - Pollakiuria [Unknown]
  - Dehydration [Unknown]
  - Dysuria [Unknown]
  - Hypoacusis [Unknown]
  - Coagulopathy [Unknown]
  - Pain [Unknown]
  - Middle insomnia [Unknown]
  - Nocturia [Unknown]
  - Impaired quality of life [Unknown]
  - Loss of personal independence in daily activities [Unknown]
  - Haematuria [Recovered/Resolved]
  - Drug interaction [Unknown]
  - Blood urine present [Recovering/Resolving]
